FAERS Safety Report 6522359-1 (Version None)
Quarter: 2009Q4

REPORT INFORMATION
  Report Type: 
  Country: None (occurrence: None)
  Receive Date: 20091229
  Receipt Date: 20091229
  Transmission Date: 20100525
  Serious: Yes (Life-Threatening)
  Sender: FDA-Public Use
  Company Number: None

PATIENT
  Age: 82 Year
  Sex: Female
  Weight: 82 kg

DRUGS (6)
  1. METOPROLOL [Suspect]
     Indication: MYOCARDIAL INFARCTION
     Dosage: 5MG IV X 1
     Route: 042
     Dates: start: 20091005
  2. LEVOFLOXACIN [Concomitant]
  3. ASPIRIN [Concomitant]
  4. LASIX [Concomitant]
  5. INSULIN [Concomitant]
  6. ONDANSETRON [Concomitant]

REACTIONS (2)
  - BRONCHOSPASM [None]
  - WHEEZING [None]
